FAERS Safety Report 5371380-8 (Version None)
Quarter: 2007Q2

REPORT INFORMATION
  Report Type: 
  Country: None (occurrence: None)
  Receive Date: 20070615
  Receipt Date: 20060517
  Transmission Date: 20071010
  Serious: Yes (Other)
  Sender: FDA-Public Use
  Company Number: 200614463US

PATIENT
  Age: 63 Year
  Sex: 0
  Weight: 100 kg

DRUGS (12)
  1. LANTUS [Suspect]
     Indication: DIABETES MELLITUS NON-INSULIN-DEPENDENT
     Dosage: 70 IN AM AND 60 IN PM U BID
     Dates: start: 20040101, end: 20060517
  2. LANTUS [Suspect]
     Indication: DIABETES MELLITUS NON-INSULIN-DEPENDENT
     Dosage: 70 U QAM
     Dates: start: 20060517
  3. DULOXETINE HYDROCHLORIDE (CYMBALTA) [Concomitant]
  4. CITALOPRAM HYDROBROMIDE (CELEXA /00582602/) [Concomitant]
  5. METOPROLOL TARTRATE [Concomitant]
  6. ACETYLSALICYLIC ACID (BABY ASPIRIN) [Concomitant]
  7. PREVACID [Concomitant]
  8. CELEBREX [Concomitant]
  9. SYNTHROID [Concomitant]
  10. FUROSEMIDE (LASIX /0032601/) [Concomitant]
  11. AMLODIPINE (NORVASC /00972401/) [Concomitant]
  12. PIOGLITAZONE [Concomitant]

REACTIONS (3)
  - BLOOD GLUCOSE DECREASED [None]
  - BLOOD GLUCOSE INCREASED [None]
  - HYPERGLYCAEMIA [None]
